FAERS Safety Report 5682614-4 (Version None)
Quarter: 2008Q1

REPORT INFORMATION
  Report Type: 
  Country: None (occurrence: None)
  Receive Date: 20080327
  Receipt Date: 20080317
  Transmission Date: 20080703
  Serious: Yes (Hospitalization, Other)
  Sender: FDA-Public Use
  Company Number: US-AMGEN-QUU268073

PATIENT
  Sex: Female
  Weight: 47.7 kg

DRUGS (4)
  1. ENBREL [Suspect]
     Indication: PSORIATIC ARTHROPATHY
     Route: 058
     Dates: start: 20070720
  2. VIVACTIL [Concomitant]
     Route: 048
     Dates: start: 20080105, end: 20080227
  3. VITAMIN B-12 [Concomitant]
     Dates: start: 20020315
  4. VITAMIN TAB [Concomitant]
     Dates: start: 20080227, end: 20080305

REACTIONS (3)
  - ABORTION SPONTANEOUS [None]
  - BLOOD HUMAN CHORIONIC GONADOTROPIN ABNORMAL [None]
  - ECTOPIC PREGNANCY [None]
